FAERS Safety Report 11452753 (Version 1)
Quarter: 2015Q3

REPORT INFORMATION
  Report Type: Spontaneous
  Country: US (occurrence: US)
  Receive Date: 20150903
  Receipt Date: 20150903
  Transmission Date: 20151125
  Serious: No
  Sender: FDA-Public Use
  Company Number: US-ROCHE-1061161

PATIENT
  Sex: Male

DRUGS (1)
  1. PEGASYS [Suspect]
     Active Substance: PEGINTERFERON ALFA-2A
     Indication: PRODUCT USED FOR UNKNOWN INDICATION
     Route: 058

REACTIONS (6)
  - Infection [Recovered/Resolved]
  - Bedridden [Recovered/Resolved]
  - Drug ineffective [Unknown]
  - Poor quality drug administered [Unknown]
  - Incorrect product storage [Unknown]
  - Nasopharyngitis [Recovered/Resolved]
